FAERS Safety Report 17630655 (Version 1)
Quarter: 2020Q2

REPORT INFORMATION
  Report Type: Report from Study
  Country: US (occurrence: US)
  Receive Date: 20200406
  Receipt Date: 20200406
  Transmission Date: 20200713
  Serious: Yes (Hospitalization, Other)
  Sender: FDA-Public Use
  Company Number: US-SA-2019SA102275

PATIENT
  Age: 21 Year
  Sex: Male
  Weight: 73 kg

DRUGS (2)
  1. ALEMTUZUMAB [Suspect]
     Active Substance: ALEMTUZUMAB
     Indication: MULTIPLE SCLEROSIS
     Dosage: 12 MG, QD
     Route: 041
     Dates: start: 20180430, end: 20180504
  2. PREDNISONE. [Concomitant]
     Active Substance: PREDNISONE
     Dosage: 1 DF, QD
     Route: 048
     Dates: start: 20180307

REACTIONS (20)
  - Peripheral swelling [Unknown]
  - Muscle spasms [Unknown]
  - Haemorrhage [Unknown]
  - Arterial occlusive disease [Unknown]
  - Hypoaesthesia [Unknown]
  - Paraesthesia [Unknown]
  - Anti factor VIII antibody positive [Unknown]
  - Bladder dilatation [Unknown]
  - Muscular weakness [Unknown]
  - Autoimmune disorder [Unknown]
  - Haematoma [Unknown]
  - Haemarthrosis [Unknown]
  - Nystagmus [Unknown]
  - Pain in extremity [Unknown]
  - Dysarthria [Unknown]
  - Acquired haemophilia [Unknown]
  - Compartment syndrome [Unknown]
  - Anaemia [Unknown]
  - Liver function test increased [Unknown]
  - Computerised tomogram abnormal [Unknown]
